FAERS Safety Report 9544279 (Version 1)
Quarter: 2013Q3

REPORT INFORMATION
  Report Type: Spontaneous
  Country: DK (occurrence: DK)
  Receive Date: 20130923
  Receipt Date: 20130923
  Transmission Date: 20140515
  Serious: Yes (Other)
  Sender: FDA-Public Use
  Company Number: DK-MYLANLABS-2013S1020481

PATIENT
  Sex: Female

DRUGS (5)
  1. OMEPRAZOLE [Suspect]
     Indication: PITUITARY TUMOUR
  2. THYCAPZOL [Suspect]
     Indication: PITUITARY TUMOUR
     Dates: start: 1994, end: 2012
  3. ALPRAZOLAM [Suspect]
     Indication: PITUITARY TUMOUR
     Dates: start: 1996, end: 2012
  4. IPSTYL [Suspect]
     Indication: PITUITARY TUMOUR
     Dates: start: 2006
  5. HYDROCORTISONE [Concomitant]
     Indication: PRODUCT USED FOR UNKNOWN INDICATION
     Dates: start: 1995, end: 2001

REACTIONS (2)
  - Tooth erosion [Not Recovered/Not Resolved]
  - Off label use [Unknown]
